FAERS Safety Report 10066632 (Version 2)
Quarter: 2014Q2

REPORT INFORMATION
  Report Type: Spontaneous
  Country: IT (occurrence: IT)
  Receive Date: 20140408
  Receipt Date: 20140605
  Transmission Date: 20141212
  Serious: Yes (Other)
  Sender: FDA-Public Use
  Company Number: IT-VERTEX PHARMACEUTICALS INC-2014-001835

PATIENT
  Age: 53 Year
  Sex: Male

DRUGS (3)
  1. INCIVO [Suspect]
     Indication: CHRONIC HEPATITIS C
     Dosage: 2250 MG, QD
     Route: 048
     Dates: start: 20140124, end: 20140314
  2. COPEGUS [Suspect]
     Indication: CHRONIC HEPATITIS C
     Dosage: 1000 MG, QD
     Dates: start: 20140124, end: 20140314
  3. PEGINTRON [Concomitant]
     Indication: CHRONIC HEPATITIS C
     Dosage: 1 DF, UNK
     Dates: start: 20140124, end: 20140314

REACTIONS (1)
  - Rash [Recovering/Resolving]
